FAERS Safety Report 10271910 (Version 1)
Quarter: 2014Q3

REPORT INFORMATION
  Report Type: Spontaneous
  Country: US (occurrence: US)
  Receive Date: 20140702
  Receipt Date: 20140702
  Transmission Date: 20150326
  Serious: Yes (Other)
  Sender: FDA-Public Use
  Company Number: CHPA2014US008819

PATIENT
  Age: 57 Year
  Sex: Female

DRUGS (1)
  1. NODOZ [Suspect]
     Active Substance: CAFFEINE
     Indication: DEPRESSED LEVEL OF CONSCIOUSNESS
     Dosage: 1 DF, QD
     Route: 048
     Dates: start: 2012

REACTIONS (4)
  - Neoplasm malignant [Unknown]
  - Fatigue [Unknown]
  - Incorrect drug administration duration [Unknown]
  - Somnolence [Unknown]
